FAERS Safety Report 5334918-2 (Version None)
Quarter: 2007Q2

REPORT INFORMATION
  Report Type: 
  Country: None (occurrence: None)
  Receive Date: 20070522
  Receipt Date: 20070510
  Transmission Date: 20071010
  Serious: Yes (Other)
  Sender: FDA-Public Use
  Company Number: 100#08#2007-01571

PATIENT
  Age: 55 Year
  Sex: Male

DRUGS (2)
  1. TRAMADOL HCL [Suspect]
     Indication: BACK PAIN
  2. PARACETAMOL ( PARACETAMOL) ( PARACETAMOL) [Suspect]
     Indication: BACK PAIN

REACTIONS (2)
  - FLANK PAIN [None]
  - RETROPERITONEAL FIBROSIS [None]
